FAERS Safety Report 17316746 (Version 1)
Quarter: 2020Q1

REPORT INFORMATION
  Report Type: Spontaneous
  Country: US (occurrence: US)
  Receive Date: 20200124
  Receipt Date: 20200124
  Transmission Date: 20200409
  Serious: No
  Sender: FDA-Public Use
  Company Number: US-PERRIGO-15US012396

PATIENT
  Sex: Female
  Weight: 11.34 kg

DRUGS (4)
  1. IBUPROFEN. [Suspect]
     Active Substance: IBUPROFEN
     Indication: PAIN
     Dosage: UNKNOWN, PRN
     Route: 048
     Dates: start: 2014, end: 2014
  2. IBUPROFEN. [Suspect]
     Active Substance: IBUPROFEN
     Indication: TEETHING
     Dosage: 100 MG, 1 TO 2 TIMES DAILY
     Route: 048
     Dates: start: 201509, end: 20151001
  3. TYLENOL [Concomitant]
     Active Substance: ACETAMINOPHEN
     Indication: TEETHING
     Dosage: UNK
     Route: 065
     Dates: start: 2014
  4. MULTIVITAMINS, PLAIN [Concomitant]
     Active Substance: VITAMINS
     Indication: SUPPLEMENTATION THERAPY
     Dosage: UNK
     Route: 065
     Dates: start: 2014

REACTIONS (2)
  - Exposure to unspecified agent [Recovered/Resolved]
  - Product administered to patient of inappropriate age [Recovered/Resolved]

NARRATIVE: CASE EVENT DATE: 2014
